FAERS Safety Report 5298390-3 (Version None)
Quarter: 2007Q2

REPORT INFORMATION
  Report Type: 
  Country: None (occurrence: None)
  Receive Date: 20070416
  Receipt Date: 20070405
  Transmission Date: 20071010
  Serious: Yes (Other)
  Sender: FDA-Public Use
  Company Number: US-PFIZER INC-2007027781

PATIENT
  Sex: Female
  Weight: 84.8 kg

DRUGS (6)
  1. CHANTIX [Suspect]
     Indication: SMOKING CESSATION THERAPY
  2. ZOLOFT [Concomitant]
  3. WELLBUTRIN [Concomitant]
  4. PROTONIX [Concomitant]
  5. VITAMINS [Concomitant]
  6. FISH OIL [Concomitant]

REACTIONS (3)
  - BACK INJURY [None]
  - DRUG INEFFECTIVE [None]
  - ROAD TRAFFIC ACCIDENT [None]
